FAERS Safety Report 6771736-2 (Version None)
Quarter: 2010Q2

REPORT INFORMATION
  Report Type: 
  Country: None (occurrence: None)
  Receive Date: 20100616
  Receipt Date: 20091124
  Transmission Date: 20101027
  Serious: No
  Sender: FDA-Public Use
  Company Number: US-ASTRAZENECA-2009SE28567

PATIENT
  Sex: Female
  Weight: 67.6 kg

DRUGS (4)
  1. ATACAND [Suspect]
     Route: 048
  2. LISINOPRIL [Suspect]
     Route: 048
  3. METOPROL [Concomitant]
  4. FASOMAX [Concomitant]

REACTIONS (3)
  - ALOPECIA [None]
  - COUGH [None]
  - UPPER RESPIRATORY TRACT INFECTION [None]
